FAERS Safety Report 15974263 (Version 2)
Quarter: 2019Q2

REPORT INFORMATION
  Report Type: Report from Study
  Country: US (occurrence: US)
  Receive Date: 20190218
  Receipt Date: 20190411
  Transmission Date: 20190711
  Serious: Yes (Hospitalization)
  Sender: FDA-Public Use
  Company Number: US-ROCHE-2252312

PATIENT
  Age: 55 Year
  Sex: Female
  Weight: 59.47 kg

DRUGS (3)
  1. OCREVUS [Suspect]
     Active Substance: OCRELIZUMAB
     Indication: RELAPSING-REMITTING MULTIPLE SCLEROSIS
     Dosage: SECOND DOSE
     Route: 042
     Dates: start: 20190123
  2. OCREVUS [Suspect]
     Active Substance: OCRELIZUMAB
     Indication: RELAPSING MULTIPLE SCLEROSIS
     Dosage: SHE RECEIVED THE SECOND DOSE OF OCRELIZUMAB ON 23/JAN/2019
     Route: 042
     Dates: start: 20181217
  3. OCREVUS [Suspect]
     Active Substance: OCRELIZUMAB
     Route: 042
     Dates: start: 20181217

REACTIONS (13)
  - Pneumonia [Recovered/Resolved]
  - Headache [Not Recovered/Not Resolved]
  - Renal failure [Recovered/Resolved]
  - Escherichia infection [Recovered/Resolved]
  - Sepsis [Unknown]
  - Abdominal pain upper [Unknown]
  - Asthenia [Not Recovered/Not Resolved]
  - Balance disorder [Not Recovered/Not Resolved]
  - Migraine [Unknown]
  - Hypotension [Recovered/Resolved]
  - Nausea [Unknown]
  - Vomiting [Unknown]
  - Abdominal discomfort [Recovered/Resolved]

NARRATIVE: CASE EVENT DATE: 20181217
